FAERS Safety Report 14902392 (Version 1)
Quarter: 2018Q2

REPORT INFORMATION
  Report Type: Spontaneous
  Country: JP (occurrence: JP)
  Receive Date: 20180516
  Receipt Date: 20180516
  Transmission Date: 20180711
  Serious: Yes (Hospitalization, Disabling, Other)
  Sender: FDA-Public Use
  Company Number: JP-JNJFOC-20180405291

PATIENT
  Age: 78 Year
  Sex: Male
  Weight: 54.6 kg

DRUGS (6)
  1. XARELTO [Suspect]
     Active Substance: RIVAROXABAN
     Indication: ATRIAL FIBRILLATION
     Route: 048
     Dates: end: 20160722
  2. GASLON [Concomitant]
     Active Substance: IRSOGLADINE MALEATE
     Indication: CHRONIC GASTRITIS
     Route: 048
  3. TAMSULOSIN [Concomitant]
     Active Substance: TAMSULOSIN
     Indication: BENIGN PROSTATIC HYPERPLASIA
     Route: 048
     Dates: end: 20170415
  4. APIXABAN [Concomitant]
     Active Substance: APIXABAN
     Indication: ATRIAL FIBRILLATION
     Route: 048
     Dates: start: 20160722, end: 20170415
  5. MOHRUS [Concomitant]
     Active Substance: KETOPROFEN
     Indication: BACK PAIN
     Route: 003
  6. RANITIDINE. [Concomitant]
     Active Substance: RANITIDINE
     Indication: CHRONIC GASTRITIS
     Route: 048

REACTIONS (4)
  - Aphasia [Unknown]
  - Cerebral haemorrhage [Recovered/Resolved with Sequelae]
  - Hemiplegia [Unknown]
  - Urinary incontinence [Unknown]

NARRATIVE: CASE EVENT DATE: 20160716
